FAERS Safety Report 19027832 (Version 2)
Quarter: 2021Q3

REPORT INFORMATION
  Report Type: Spontaneous
  Country: CN (occurrence: CN)
  Receive Date: 20210319
  Receipt Date: 20210715
  Transmission Date: 20211014
  Serious: Yes (Hospitalization, Other)
  Sender: FDA-Public Use
  Company Number: CN-009507513-2103CHN003527

PATIENT

DRUGS (3)
  1. KEYTRUDA [Suspect]
     Active Substance: PEMBROLIZUMAB
     Indication: LUNG ADENOCARCINOMA
     Dosage: 2 MG/KG WITH A COURSE OF TREATMENT EVERY 3 WEEKS
     Route: 041
  2. PEMETREXED DISODIUM [Suspect]
     Active Substance: PEMETREXED DISODIUM
     Indication: LUNG ADENOCARCINOMA
     Dosage: 800MG/KG D1 WITH A COURSE OF TREATMENT EVERY 3 WEEKS
     Route: 041
  3. CARBOPLATIN. [Suspect]
     Active Substance: CARBOPLATIN
     Indication: LUNG ADENOCARCINOMA
     Dosage: AUC EQUAL TO 5 D1 WITH A COURSE OF TREATMENT EVERY 3 WEEKS
     Route: 041

REACTIONS (9)
  - Myelosuppression [Unknown]
  - Immune-mediated lung disease [Recovered/Resolved]
  - Rash maculo-papular [Recovered/Resolved]
  - Immune-mediated hypothyroidism [Unknown]
  - Myelosuppression [Recovered/Resolved]
  - Off label use [Unknown]
  - Fatigue [Unknown]
  - Gastrointestinal disorder [Recovered/Resolved]
  - Pyrexia [Recovered/Resolved]
